FAERS Safety Report 13661792 (Version 1)
Quarter: 2017Q2

REPORT INFORMATION
  Report Type: Report from Study
  Country: MX (occurrence: MX)
  Receive Date: 20170616
  Receipt Date: 20170616
  Transmission Date: 20170830
  Serious: Yes (Other)
  Sender: FDA-Public Use
  Company Number: PHHY2017MX089429

PATIENT
  Weight: 72 kg

DRUGS (3)
  1. LOPRESSOR [Suspect]
     Active Substance: METOPROLOL TARTRATE
     Indication: HYPERTENSION
     Dosage: 1 DF, QD (EVERY 24 HOURS)
     Route: 065
     Dates: end: 2015
  2. METFORMIN [Concomitant]
     Active Substance: METFORMIN HYDROCHLORIDE
     Indication: PRODUCT USED FOR UNKNOWN INDICATION
     Dosage: 1 DF, QD (EVERY 24 HOURS)
     Route: 065
     Dates: end: 1992
  3. LANTUS [Concomitant]
     Active Substance: INSULIN GLARGINE
     Indication: PRODUCT USED FOR UNKNOWN INDICATION
     Dosage: UNK, (15UI OF LANTUS SOLOSTAR, ALTERNATING WITH 25 UI OF LANTUS (VIAL))
     Route: 065

REACTIONS (2)
  - Blood pressure inadequately controlled [Recovered/Resolved]
  - Diabetes mellitus inadequate control [Recovered/Resolved]
